FAERS Safety Report 7849445-8 (Version None)
Quarter: 2011Q4

REPORT INFORMATION
  Report Type: 
  Country: None (occurrence: None)
  Receive Date: 20111026
  Receipt Date: 20111018
  Transmission Date: 20120403
  Serious: Yes (Hospitalization)
  Sender: FDA-Public Use
  Company Number: US-BAYER-2011-061095

PATIENT
  Age: 60 Year
  Sex: Male
  Weight: 96.1 kg

DRUGS (5)
  1. MDX-010 [Suspect]
     Indication: MALIGNANT MELANOMA
     Dosage: 10 MG/KG, DAY 1 OF 21 DAY CYCLE
     Route: 042
     Dates: start: 20110513, end: 20110513
  2. DECADRON [Concomitant]
     Indication: MALIGNANT MELANOMA
     Dosage: 4 MG, Q6H
     Route: 048
  3. MDX-010 [Suspect]
     Dosage: 10 MG/KG, DAY 1 OF 21 DAY CYCLE
     Route: 042
     Dates: start: 20110531, end: 20110531
  4. SARGRAMOSTIM [Suspect]
     Indication: MALIGNANT MELANOMA
     Dosage: 250 ?G, QD DAYS 1-14 OF 21 DAY CYCLE
     Route: 058
     Dates: start: 20110513, end: 20110613
  5. SARGRAMOSTIM [Suspect]
     Dosage: 250 ?G, QD DAYS 1-14 OF 21 DAY CYCLE
     Route: 058
     Dates: start: 20110531, end: 20110613

REACTIONS (4)
  - FATIGUE [None]
  - HEADACHE [None]
  - BACK PAIN [None]
  - DYSPNOEA [None]
